FAERS Safety Report 4385701-6 (Version None)
Quarter: 2004Q2

REPORT INFORMATION
  Report Type: 
  Country: None (occurrence: None)
  Receive Date: 20040625
  Receipt Date: 20040625
  Transmission Date: 20050107
  Serious: Yes (Hospitalization)
  Sender: FDA-Public Use
  Company Number: None

PATIENT
  Sex: Male
  Weight: 73 kg

DRUGS (11)
  1. POTASSIUM CHLORIDE [Suspect]
     Indication: HYPOKALAEMIA
     Dosage: 10 MEQ DAILY ORAL
     Route: 048
     Dates: start: 20030130, end: 20040609
  2. FUROSEMIDE [Concomitant]
  3. OMEPRAZOLE [Concomitant]
  4. DOCUSATE SODIUM [Concomitant]
  5. PHENYTOIN [Concomitant]
  6. ANAGRELIDE HCL [Concomitant]
  7. GABAPENTIN [Concomitant]
  8. VENLAFAXINE [Concomitant]
  9. MIRTAZAPINE [Concomitant]
  10. FLUNISOLIDE [Concomitant]
  11. MEGESTROL ACETATE [Concomitant]

REACTIONS (1)
  - HYPERKALAEMIA [None]
